FAERS Safety Report 19065507 (Version 3)
Quarter: 2021Q3

REPORT INFORMATION
  Report Type: Report from Study
  Country: US (occurrence: US)
  Receive Date: 20210327
  Receipt Date: 20210720
  Transmission Date: 20211014
  Serious: Yes (Other)
  Sender: FDA-Public Use
  Company Number: NVSC2021US063276

PATIENT
  Age: 56 Year
  Sex: Female

DRUGS (4)
  1. COSENTYX [Suspect]
     Active Substance: SECUKINUMAB
     Dosage: 150 MG, UNKNOWN
     Route: 065
  2. COSENTYX [Suspect]
     Active Substance: SECUKINUMAB
     Dosage: 300 MG, QMO
     Route: 058
     Dates: start: 20210629
  3. COSENTYX [Suspect]
     Active Substance: SECUKINUMAB
     Indication: PSORIASIS
     Dosage: 300 MG, QW (QW FOR 5 WEEKS AND THEN QMO)
     Route: 058
     Dates: start: 20210225
  4. COSENTYX [Suspect]
     Active Substance: SECUKINUMAB
     Dosage: 300 MG, QW
     Route: 058
     Dates: start: 20210304

REACTIONS (12)
  - Feeling hot [Unknown]
  - Dizziness [Unknown]
  - Glaucoma [Unknown]
  - Blood pressure increased [Unknown]
  - Dry skin [Unknown]
  - Feeling cold [Unknown]
  - Ear infection [Unknown]
  - Psoriasis [Unknown]
  - Depression [Unknown]
  - Pigmentation disorder [Unknown]
  - Anxiety [Unknown]
  - Fatigue [Unknown]

NARRATIVE: CASE EVENT DATE: 20210309
